FAERS Safety Report 6196695-5 (Version None)
Quarter: 2009Q2

REPORT INFORMATION
  Report Type: 
  Country: None (occurrence: None)
  Receive Date: 20090520
  Receipt Date: 20090507
  Transmission Date: 20091009
  Serious: Yes (Death, Hospitalization, Other)
  Sender: FDA-Public Use
  Company Number: US-PFIZER INC-2009196819

PATIENT
  Sex: Female

DRUGS (2)
  1. REVATIO [Suspect]
     Indication: PULMONARY HYPERTENSION
     Dosage: 20 MG, UNK
  2. REVATIO [Suspect]
     Indication: SARCOIDOSIS

REACTIONS (6)
  - CARDIO-RESPIRATORY ARREST [None]
  - FLUID OVERLOAD [None]
  - LUNG INFECTION [None]
  - PULMONARY ARTERIAL HYPERTENSION [None]
  - PULMONARY EMBOLISM [None]
  - SARCOIDOSIS [None]
